FAERS Safety Report 9601764 (Version 1)
Quarter: 2013Q4

REPORT INFORMATION
  Report Type: Spontaneous
  Country: US (occurrence: None)
  Receive Date: 20131004
  Receipt Date: 20131004
  Transmission Date: 20140711
  Serious: Yes (Hospitalization)
  Sender: FDA-Public Use
  Company Number: None

PATIENT
  Age: 30 Year
  Sex: Female
  Weight: 113.4 kg

DRUGS (1)
  1. EMOQUETTE [Suspect]
     Indication: CONTRACEPTION

REACTIONS (4)
  - Headache [None]
  - Pain [None]
  - Visual impairment [None]
  - Eye pain [None]
